FAERS Safety Report 24585750 (Version 1)
Quarter: 2024Q4

REPORT INFORMATION
  Report Type: Report from Study
  Country: FI (occurrence: FI)
  Receive Date: 20241106
  Receipt Date: 20241106
  Transmission Date: 20250114
  Serious: Yes (Other)
  Sender: MYLAN
  Company Number: FI-MYLANLABS-2024M1100171

PATIENT
  Age: 65 Year
  Sex: Male

DRUGS (1)
  1. CLOZAPINE [Suspect]
     Active Substance: CLOZAPINE
     Indication: Schizophrenia
     Dosage: UNK (CLOZAPINE TREATMENT HAD BEEN IN USE AT LEAST SINCE YEAR 1998)
     Route: 065
     Dates: start: 1998

REACTIONS (1)
  - Pseudo-occlusion of internal carotid artery [Recovered/Resolved]

NARRATIVE: CASE EVENT DATE: 20080101
